FAERS Safety Report 10514626 (Version 1)
Quarter: 2014Q4

REPORT INFORMATION
  Report Type: Spontaneous
  Country: DK (occurrence: FR)
  Receive Date: 20141013
  Receipt Date: 20141013
  Transmission Date: 20150528
  Serious: Yes (Hospitalization)
  Sender: FDA-Public Use
  Company Number: FR-FRI-1000071462

PATIENT
  Age: 46 Year
  Sex: Female

DRUGS (7)
  1. INEXIUM [Suspect]
     Active Substance: ESOMEPRAZOLE
     Dosage: 20 MG
     Route: 048
     Dates: end: 20140903
  2. FLAGYL [Suspect]
     Active Substance: METRONIDAZOLE\METRONIDAZOLE HYDROCHLORIDE
     Dosage: 1500 MG
     Dates: start: 20140801, end: 20140816
  3. LOVENOX [Suspect]
     Active Substance: ENOXAPARIN SODIUM
     Dosage: 0.4 ML
     Route: 058
     Dates: start: 20140708, end: 20140923
  4. CEFTRIAXONE PANPHARMA [Suspect]
     Active Substance: CEFTRIAXONE
     Route: 041
     Dates: start: 20140806, end: 20140813
  5. ESCITALOPRAM [Suspect]
     Active Substance: ESCITALOPRAM OXALATE
     Dates: start: 20140818, end: 20140919
  6. DOLIPRANE [Suspect]
     Active Substance: ACETAMINOPHEN
     Route: 048
     Dates: end: 20140924
  7. TRANXENE T-TAB [Suspect]
     Active Substance: CLORAZEPATE DIPOTASSIUM
     Route: 048
     Dates: start: 20140801

REACTIONS (1)
  - Neutropenia [Not Recovered/Not Resolved]

NARRATIVE: CASE EVENT DATE: 20140829
